FAERS Safety Report 11357939 (Version 1)
Quarter: 2015Q3

REPORT INFORMATION
  Report Type: Spontaneous
  Country: US (occurrence: US)
  Receive Date: 20150803
  Receipt Date: 20150803
  Transmission Date: 20151125
  Serious: No
  Sender: FDA-Public Use
  Company Number: US-ELI_LILLY_AND_COMPANY-US201006000977

PATIENT
  Age: 76 Year
  Sex: Male

DRUGS (11)
  1. SERZONE [Interacting]
     Active Substance: NEFAZODONE HYDROCHLORIDE
     Dosage: UNK, UNKNOWN
     Route: 065
  2. LEVOTHYROXINE. [Interacting]
     Active Substance: LEVOTHYROXINE
     Dosage: UNK, UNKNOWN
     Route: 065
  3. STRATTERA [Suspect]
     Active Substance: ATOMOXETINE HYDROCHLORIDE
     Indication: ATTENTION DEFICIT/HYPERACTIVITY DISORDER
     Dosage: 40 MG, 2/D
     Route: 065
     Dates: start: 2003
  4. GLUCOSAMINE [Interacting]
     Active Substance: GLUCOSAMINE
     Dosage: UNK, UNKNOWN
     Route: 065
  5. CARDURA [Interacting]
     Active Substance: DOXAZOSIN MESYLATE
     Dosage: UNK, UNKNOWN
     Route: 065
  6. VITAMIN B12 [Interacting]
     Active Substance: CYANOCOBALAMIN
     Dosage: UNK, UNKNOWN
     Route: 065
  7. NAMENDA [Interacting]
     Active Substance: MEMANTINE HYDROCHLORIDE
     Dosage: UNK, UNKNOWN
     Route: 065
  8. SERZONE [Interacting]
     Active Substance: NEFAZODONE HYDROCHLORIDE
     Dosage: UNK, UNKNOWN
     Route: 065
     Dates: start: 20100414
  9. ARICEPT [Interacting]
     Active Substance: DONEPEZIL HYDROCHLORIDE
     Dosage: UNK, UNKNOWN
     Route: 065
  10. TESTOSTERONE. [Interacting]
     Active Substance: TESTOSTERONE
     Dosage: UNK, UNKNOWN
     Route: 065
  11. MULTIVITAMIN [Interacting]
     Active Substance: VITAMINS
     Dosage: UNK, UNKNOWN
     Route: 065

REACTIONS (3)
  - Drug interaction [Unknown]
  - Cognitive disorder [Unknown]
  - Apathy [Unknown]

NARRATIVE: CASE EVENT DATE: 200906
